FAERS Safety Report 24530687 (Version 1)
Quarter: 2024Q4

REPORT INFORMATION
  Report Type: Spontaneous
  Country: US (occurrence: US)
  Receive Date: 20241021
  Receipt Date: 20241021
  Transmission Date: 20250115
  Serious: Yes (Hospitalization)
  Sender: BRISTOL-MYERS SQUIBB COMPANY
  Company Number: US-BRISTOL-MYERS SQUIBB COMPANY-2024-164123

PATIENT
  Age: 82 Year
  Sex: Female
  Weight: 129.27 kg

DRUGS (1)
  1. REVLIMID [Suspect]
     Active Substance: LENALIDOMIDE
     Indication: Plasma cell myeloma
     Dosage: ONCE DAILY FOR 2 WEEKS ON THEN 1 WEEK OF
     Route: 048

REACTIONS (2)
  - Pleural effusion [Recovering/Resolving]
  - Off label use [Unknown]
